FAERS Safety Report 17623352 (Version 2)
Quarter: 2025Q2

REPORT INFORMATION
  Report Type: Spontaneous
  Country: DE (occurrence: DE)
  Receive Date: 20200403
  Receipt Date: 20250604
  Transmission Date: 20250717
  Serious: Yes (Other)
  Sender: TAKEDA
  Company Number: DE-KEDRION-2020-000086

PATIENT
  Age: 27 Year
  Sex: Female

DRUGS (7)
  1. HUMAN IMMUNOGLOBULIN G [Suspect]
     Active Substance: HUMAN IMMUNOGLOBULIN G
     Indication: Cogan^s syndrome
     Dosage: UNK UNK, Q4WEEKS
     Dates: start: 2010
  2. HUMAN IMMUNOGLOBULIN G [Suspect]
     Active Substance: HUMAN IMMUNOGLOBULIN G
     Dosage: UNK UNK, Q4WEEKS
  3. HUMAN IMMUNOGLOBULIN G [Suspect]
     Active Substance: HUMAN IMMUNOGLOBULIN G
     Dosage: 70 MILLIGRAM
     Dates: start: 2016
  4. HUMAN IMMUNOGLOBULIN G [Suspect]
     Active Substance: HUMAN IMMUNOGLOBULIN G
     Dosage: 60 MILLIGRAM, Q4WEEKS
  5. PREDNISOLONE [Concomitant]
     Active Substance: PREDNISOLONE
     Indication: Cogan^s syndrome
  6. AZATHIOPRINE [Concomitant]
     Active Substance: AZATHIOPRINE
     Indication: Cogan^s syndrome
  7. ACYCLOVIR [Concomitant]
     Active Substance: ACYCLOVIR
     Indication: Labyrinthitis

REACTIONS (13)
  - Keratitis interstitial [Unknown]
  - Inflammation [Unknown]
  - Skin lesion inflammation [Unknown]
  - Tinnitus [Unknown]
  - Gait disturbance [Unknown]
  - Vertigo [Unknown]
  - Paraesthesia [Unknown]
  - Migraine [Recovered/Resolved]
  - Nausea [Recovered/Resolved]
  - Maternal exposure during pregnancy [Recovered/Resolved]
  - Intentional product use issue [Unknown]
  - Headache [Recovered/Resolved]
  - Product use in unapproved indication [Unknown]

NARRATIVE: CASE EVENT DATE: 20100101
